FAERS Safety Report 7531225-4 (Version None)
Quarter: 2011Q2

REPORT INFORMATION
  Report Type: 
  Country: None (occurrence: None)
  Receive Date: 20110608
  Receipt Date: 20110527
  Transmission Date: 20111010
  Serious: Yes (Hospitalization)
  Sender: FDA-Public Use
  Company Number: FR-KINGPHARMUSA00001-K201100662

PATIENT
  Age: 63 Year
  Sex: Female
  Weight: 100 kg

DRUGS (1)
  1. ALTACE [Suspect]
     Indication: HYPERTENSION
     Dosage: 1.25 MG, QD
     Route: 048
     Dates: start: 20110502, end: 20110506

REACTIONS (2)
  - CONVULSION [None]
  - MYOCLONUS [None]
